FAERS Safety Report 7603815-1 (Version None)
Quarter: 2011Q3

REPORT INFORMATION
  Report Type: 
  Country: None (occurrence: None)
  Receive Date: 20110712
  Receipt Date: 20110704
  Transmission Date: 20111222
  Serious: Yes (Hospitalization)
  Sender: FDA-Public Use
  Company Number: BR-GLAXOSMITHKLINE-B0717226A

PATIENT
  Sex: Female

DRUGS (7)
  1. FLUOXETINE [Concomitant]
  2. DRENISON [Concomitant]
  3. SOAPEX [Concomitant]
  4. DIPYRONE [Concomitant]
  5. NITRAZEPAM [Concomitant]
  6. ACITRETIN [Suspect]
     Indication: KERATOSIS FOLLICULAR
     Route: 048
  7. DIAZEPAM [Concomitant]

REACTIONS (3)
  - INFECTION [None]
  - PAIN [None]
  - WOUND INFECTION [None]
